FAERS Safety Report 21481164 (Version 1)
Quarter: 2022Q4

REPORT INFORMATION
  Report Type: Spontaneous
  Country: US (occurrence: None)
  Receive Date: 20221019
  Receipt Date: 20221019
  Transmission Date: 20230113
  Serious: No
  Sender: FDA-Public Use
  Company Number: None

PATIENT
  Age: 85 Year
  Sex: Male
  Weight: 34.7 kg

DRUGS (2)
  1. CARBOPLATIN [Suspect]
     Active Substance: CARBOPLATIN
     Dates: end: 20220830
  2. TAXOL [Suspect]
     Active Substance: PACLITAXEL
     Dates: end: 20220830

REACTIONS (7)
  - COVID-19 [None]
  - Dyspnoea [None]
  - Asthenia [None]
  - Weight decreased [None]
  - Acute kidney injury [None]
  - Blood pressure increased [None]
  - Hypophagia [None]

NARRATIVE: CASE EVENT DATE: 20220902
